FAERS Safety Report 6686928-0 (Version None)
Quarter: 2010Q2

REPORT INFORMATION
  Report Type: 
  Country: None (occurrence: None)
  Receive Date: 20100419
  Receipt Date: 20100407
  Transmission Date: 20101027
  Serious: Yes (Disabling)
  Sender: FDA-Public Use
  Company Number: PHHY2010BE21680

PATIENT
  Sex: Male

DRUGS (4)
  1. ZOMETA [Suspect]
     Indication: METASTASES TO BONE
     Dosage: 1 PERFUSION MONTHLY
     Route: 042
     Dates: start: 20080601, end: 20100203
  2. LEUPRORELIN ACETATE [Concomitant]
  3. PREDNISOLONE [Concomitant]
  4. TAXOTERE [Concomitant]

REACTIONS (1)
  - OSTEONECROSIS [None]
